FAERS Safety Report 9413190 (Version 1)
Quarter: 2013Q2

REPORT INFORMATION
  Report Type: Spontaneous
  Country: GB (occurrence: None)
  Receive Date: 20130508
  Receipt Date: 20130508
  Transmission Date: 20140414
  Serious: Yes (Other)
  Sender: FDA-Public Use
  Company Number: AUR-APL-2013-03613

PATIENT
  Age: 20 Year
  Sex: Female

DRUGS (2)
  1. RISPERIDONE [Suspect]
     Indication: PRODUCT USED FOR UNKNOWN INDICATION
  2. NITRAZEPAM (NITRAZEPAM) [Suspect]
     Indication: POOR QUALITY SLEEP
     Dates: start: 201208

REACTIONS (8)
  - Rebound effect [None]
  - Sleep disorder [None]
  - Drug ineffective [None]
  - Incorrect drug administration duration [None]
  - Feeling abnormal [None]
  - Drug interaction [None]
  - Feeling abnormal [None]
  - Intentional self-injury [None]
